FAERS Safety Report 9167477 (Version 1)
Quarter: 2013Q1

REPORT INFORMATION
  Report Type: Spontaneous
  Country: DK (occurrence: None)
  Receive Date: 20130304
  Receipt Date: 20130304
  Transmission Date: 20140127
  Serious: Yes (Other)
  Sender: FDA-Public Use
  Company Number: 2013MA001342

PATIENT
  Age: 49 Year
  Sex: Female

DRUGS (12)
  1. VINORELBINE [Suspect]
     Indication: BREAST CANCER
     Dates: start: 201211, end: 201301
  2. EPIRUBICIN HYDROCHLORIDE [Suspect]
     Indication: BREAST CANCER
     Dosage: 180 MG; IV NOS
     Route: 042
     Dates: start: 20111011, end: 201201
  3. GEMCITABINE HYDROCHLORIDE [Suspect]
     Indication: PRODUCT USED FOR UNKNOWN INDICATION
     Dates: start: 201210, end: 201211
  4. DOCETAXEL (DOCETAXEL) [Suspect]
     Indication: BREAST CANCER
     Dosage: 150 MG; IV NOS
     Route: 042
  5. TRASTUZUMAB [Suspect]
     Indication: BREAST CANCER
     Dosage: 480 MG; IV NOS
     Route: 042
     Dates: start: 20111213, end: 201301
  6. XELODA (CAPECITABINE) [Suspect]
     Indication: BREAST CANCER
     Route: 048
     Dates: start: 201207, end: 201209
  7. LAPATINIB [Suspect]
     Indication: BREAST CANCER
     Route: 048
     Dates: start: 201207, end: 201209
  8. MITOMYCIN [Suspect]
     Indication: PRODUCT USED FOR UNKNOWN INDICATION
     Dates: start: 201210, end: 201211
  9. CISPLATIN (CISPLATIN) (5 MILLIGRAM) (CISPLATIN) [Suspect]
     Indication: PRODUCT USED FOR UNKNOWN INDICATION
     Dates: start: 201211, end: 201301
  10. CYCLOPHOSPHAMIDE (CYCLOPHOSPHAMIDE) [Suspect]
     Indication: BREAST CANCER
     Dosage: 1200 MG; IV NOS
     Route: 042
     Dates: start: 20111011, end: 201201
  11. AMLODIPIN [Concomitant]
  12. LISINOPRIL [Concomitant]

REACTIONS (2)
  - Disease progression [None]
  - Metastases to liver [None]
